FAERS Safety Report 13490041 (Version 1)
Quarter: 2017Q2

REPORT INFORMATION
  Report Type: Spontaneous
  Country: US (occurrence: US)
  Receive Date: 20170427
  Receipt Date: 20170427
  Transmission Date: 20170830
  Serious: No
  Sender: FDA-Public Use
  Company Number: US-SHIRE-US201709523

PATIENT
  Sex: Female

DRUGS (1)
  1. XIIDRA [Suspect]
     Active Substance: LIFITEGRAST
     Indication: DRY EYE
     Dosage: UNK, UNKNOWN
     Route: 047
     Dates: start: 201702

REACTIONS (6)
  - Hordeolum [Unknown]
  - Lacrimation increased [Unknown]
  - Dry skin [Unknown]
  - Instillation site erythema [Unknown]
  - Instillation site pain [Unknown]
  - Dysgeusia [Unknown]
